FAERS Safety Report 20892715 (Version 1)
Quarter: 2022Q2

REPORT INFORMATION
  Report Type: Spontaneous
  Country: US (occurrence: None)
  Receive Date: 20220531
  Receipt Date: 20220531
  Transmission Date: 20220721
  Serious: No
  Sender: FDA-Public Use
  Company Number: US-Unichem Pharmaceuticals (USA) Inc-UCM202203-000221

PATIENT
  Age: 77 Year
  Sex: Female
  Weight: 58.96 kg

DRUGS (4)
  1. AMITRIPTYLINE HYDROCHLORIDE [Suspect]
     Active Substance: AMITRIPTYLINE HYDROCHLORIDE
     Indication: Inflammatory pain
     Route: 048
     Dates: start: 202202, end: 202202
  2. CALCIUM [Concomitant]
     Active Substance: CALCIUM
     Indication: Surgery
     Dosage: UNKNOWN
  3. CALCITRIOL [Concomitant]
     Active Substance: CALCITRIOL
     Indication: Surgery
     Dosage: UNKNOWN
  4. LITHIUM [Concomitant]
     Active Substance: LITHIUM
     Indication: Bipolar disorder

REACTIONS (2)
  - Confusional state [Recovered/Resolved]
  - Product use in unapproved indication [Unknown]

NARRATIVE: CASE EVENT DATE: 20220225
